FAERS Safety Report 16089310 (Version 1)
Quarter: 2019Q2

REPORT INFORMATION
  Report Type: Spontaneous
  Country: US (occurrence: US)
  Receive Date: 20190319
  Receipt Date: 20190319
  Transmission Date: 20190711
  Serious: Yes (Hospitalization)
  Sender: FDA-Public Use
  Company Number: None

PATIENT
  Age: 24 Year
  Sex: Male
  Weight: 123 kg

DRUGS (2)
  1. VANCOMYCIN [Suspect]
     Active Substance: VANCOMYCIN
     Indication: STAPHYLOCOCCAL INFECTION
     Route: 042
     Dates: start: 20190214, end: 20190312
  2. VANCOMYCIN [Suspect]
     Active Substance: VANCOMYCIN
     Indication: FEMUR FRACTURE
     Route: 042
     Dates: start: 20190214, end: 20190312

REACTIONS (3)
  - Skin exfoliation [None]
  - Drug reaction with eosinophilia and systemic symptoms [None]
  - Dermatitis exfoliative generalised [None]

NARRATIVE: CASE EVENT DATE: 20190312
